FAERS Safety Report 11340088 (Version 1)
Quarter: 2015Q3

REPORT INFORMATION
  Report Type: Spontaneous
  Country: US (occurrence: None)
  Receive Date: 20150629
  Receipt Date: 20150629
  Transmission Date: 20151125
  Serious: No
  Sender: FDA-Public Use
  Company Number: A-US2015-111417

PATIENT
  Age: 71 Year
  Sex: Female

DRUGS (2)
  1. OPSUMIT [Suspect]
     Active Substance: MACITENTAN
     Indication: COR PULMONALE CHRONIC
     Route: 048
  2. VENTAVIS [Suspect]
     Active Substance: ILOPROST
     Indication: COR PULMONALE CHRONIC
     Dosage: 5 MCG, 6X/DAY (10 MCG/ML), RESPIRATORY
     Route: 055
     Dates: start: 20140415

REACTIONS (10)
  - Cardiac flutter [None]
  - Gastrointestinal disorder [None]
  - Ocular discomfort [None]
  - Flushing [None]
  - Dyspnoea [None]
  - Headache [None]
  - Oedema peripheral [None]
  - Head discomfort [None]
  - Neck pain [None]
  - Chest discomfort [None]
